FAERS Safety Report 11009394 (Version 1)
Quarter: 2015Q2

REPORT INFORMATION
  Report Type: Spontaneous
  Country: US (occurrence: None)
  Receive Date: 20150409
  Receipt Date: 20150409
  Transmission Date: 20150821
  Serious: Yes (Life-Threatening)
  Sender: FDA-Public Use
  Company Number: None

PATIENT
  Age: 87 Year
  Sex: Male
  Weight: 107.6 kg

DRUGS (1)
  1. APIXABAN [Suspect]
     Active Substance: APIXABAN
     Indication: ATRIAL FIBRILLATION
     Route: 048
     Dates: start: 201502, end: 20150315

REACTIONS (5)
  - Gastrointestinal haemorrhage [None]
  - Duodenal ulcer [None]
  - Haemoglobin decreased [None]
  - Haematocrit decreased [None]
  - Gastric ulcer [None]

NARRATIVE: CASE EVENT DATE: 20150315
